FAERS Safety Report 8180411-1 (Version None)
Quarter: 2012Q1

REPORT INFORMATION
  Report Type: 
  Country: None (occurrence: None)
  Receive Date: 20120302
  Receipt Date: 20120217
  Transmission Date: 20120608
  Serious: Yes (Hospitalization)
  Sender: FDA-Public Use
  Company Number: JP-CTI_01448_2012

PATIENT
  Age: 4 Year
  Sex: Male

DRUGS (1)
  1. MEIACT MS - CEFDITOREN PIVOXIL [Suspect]
     Indication: LYMPHADENITIS
     Dosage: DAILY DOSE 10MG/KG
     Route: 048
     Dates: start: 20120209, end: 20120213

REACTIONS (1)
  - DRUG ERUPTION [None]
